FAERS Safety Report 8963995 (Version 1)
Quarter: 2012Q4

REPORT INFORMATION
  Report Type: 
  Country: JP (occurrence: JP)
  Receive Date: 20121213
  Receipt Date: 20121213
  Transmission Date: 20130627
  Serious: Yes (Hospitalization)
  Sender: FDA-Public Use
  Company Number: JP-BAXTER-2012BAX026460

PATIENT
  Sex: Male

DRUGS (4)
  1. DIANEAL-N PD-2 1.5% [Suspect]
     Indication: RENAL FAILURE CHRONIC
     Route: 033
     Dates: start: 20101026
  2. DIANEAL-N PD-2 2.5 PD SOLUTION [Suspect]
     Indication: RENAL FAILURE CHRONIC
     Route: 033
     Dates: start: 20101026
  3. DIANEAL-N PD-2 2.5 PD SOLUTION [Suspect]
     Route: 033
     Dates: start: 20101026
  4. EXTRANEAL [Suspect]
     Indication: RENAL FAILURE CHRONIC
     Route: 033
     Dates: start: 20101026

REACTIONS (1)
  - Nausea [Recovering/Resolving]
